FAERS Safety Report 4278890-5 (Version None)
Quarter: 2004Q1

REPORT INFORMATION
  Report Type: 
  Country: None (occurrence: None)
  Receive Date: 20040122
  Receipt Date: 20040122
  Transmission Date: 20041129
  Serious: Yes (Other)
  Sender: FDA-Public Use
  Company Number: None

PATIENT
  Age: 63 Year
  Sex: Female
  Weight: 68.0396 kg

DRUGS (2)
  1. PAXIL [Suspect]
     Indication: ANXIETY
     Dosage: 1 PER DAY
     Dates: start: 19940401, end: 20040121
  2. PAXIL [Suspect]
     Indication: PANIC ATTACK
     Dosage: 1 PER DAY
     Dates: start: 19940401, end: 20040121

REACTIONS (1)
  - DRUG WITHDRAWAL SYNDROME [None]
